FAERS Safety Report 19292126 (Version 7)
Quarter: 2021Q3

REPORT INFORMATION
  Report Type: Spontaneous
  Country: CA (occurrence: CA)
  Receive Date: 20210524
  Receipt Date: 20210826
  Transmission Date: 20211014
  Serious: Yes (Hospitalization, Other)
  Sender: FDA-Public Use
  Company Number: CA-CELLTRION INC.-2021CA006355

PATIENT

DRUGS (3)
  1. INFLECTRA [Suspect]
     Active Substance: INFLIXIMAB-DYYB
     Indication: CROHN^S DISEASE
     Dosage: 250 MG, INDUCTION: 0, 2 AND 6 WEEKS, MAINTENANCE: EVERY 8 WEEKS
     Route: 042
     Dates: start: 20210315
  2. HYDROXYUREA. [Concomitant]
     Active Substance: HYDROXYUREA
     Dosage: 500 MG, 1X/DAY
     Route: 065
  3. MORPHINE SULPHATE [Concomitant]
     Active Substance: MORPHINE SULFATE
     Indication: CROHN^S DISEASE
     Dosage: 60 MG, 2X/DAY

REACTIONS (10)
  - Illness [Unknown]
  - Malaise [Unknown]
  - Pulmonary embolism [Unknown]
  - Flank pain [Unknown]
  - Confusional state [Not Recovered/Not Resolved]
  - Oxygen saturation decreased [Not Recovered/Not Resolved]
  - COVID-19 [Unknown]
  - Weight decreased [Unknown]
  - Pancreatitis [Recovered/Resolved]
  - Product dose omission issue [Unknown]

NARRATIVE: CASE EVENT DATE: 2021
